FAERS Safety Report 5041815-9 (Version None)
Quarter: 2006Q2

REPORT INFORMATION
  Report Type: 
  Country: None (occurrence: None)
  Receive Date: 20060627
  Receipt Date: 20060615
  Transmission Date: 20061013
  Serious: Yes (Hospitalization)
  Sender: FDA-Public Use
  Company Number: 2006AL001504

PATIENT
  Age: 71 Year
  Sex: Female

DRUGS (1)
  1. ENULOSE [Suspect]
     Indication: HEPATIC CIRRHOSIS
     Dosage: PO
     Route: 048

REACTIONS (3)
  - AMMONIA INCREASED [None]
  - OFF LABEL USE [None]
  - THERAPEUTIC RESPONSE UNEXPECTED WITH DRUG SUBSTITUTION [None]
